FAERS Safety Report 20598953 (Version 2)
Quarter: 2022Q1

REPORT INFORMATION
  Report Type: Spontaneous
  Country: US (occurrence: None)
  Receive Date: 20220315
  Receipt Date: 20220315
  Transmission Date: 20220423
  Serious: No
  Sender: FDA-Public Use
  Company Number: US-ROCHE-2885391

PATIENT
  Age: 50 Year
  Sex: Female
  Weight: 104.42 kg

DRUGS (2)
  1. XOLAIR [Suspect]
     Active Substance: OMALIZUMAB
     Indication: Urticaria chronic
     Dosage: 300 MG EVERY 28 DAYS ;ONGOING: YES
     Route: 058
     Dates: start: 20210325
  2. SYNTHROID [Concomitant]
     Active Substance: LEVOTHYROXINE SODIUM
     Indication: Autoimmune thyroiditis
     Dosage: TAKE 50 MCG ONCE DAILY ;ONGOING: YES
     Route: 048
     Dates: start: 2006

REACTIONS (2)
  - Nausea [Unknown]
  - Hypoglycaemia [Recovered/Resolved]

NARRATIVE: CASE EVENT DATE: 20210325
